FAERS Safety Report 6185651-9 (Version None)
Quarter: 2009Q2

REPORT INFORMATION
  Report Type: 
  Country: None (occurrence: None)
  Receive Date: 20090511
  Receipt Date: 20090430
  Transmission Date: 20091009
  Serious: Yes (Hospitalization)
  Sender: FDA-Public Use
  Company Number: PHHO2009FR02116

PATIENT
  Sex: Male
  Weight: 80 kg

DRUGS (6)
  1. RAD 666 RAD+TAB+CMAS [Suspect]
     Indication: SMALL CELL LUNG CANCER EXTENSIVE STAGE
     Dosage: 30 MG, QW
     Route: 048
     Dates: start: 20081126, end: 20090217
  2. RAD 666 RAD+TAB+CMAS [Suspect]
     Dosage: 20 MG, QW
     Route: 048
     Dates: start: 20090218
  3. CISPLATIN [Suspect]
     Indication: SMALL CELL LUNG CANCER EXTENSIVE STAGE
     Dosage: 75 MG/M^2 Q3W
     Route: 042
     Dates: start: 20081126, end: 20090217
  4. CISPLATIN [Suspect]
     Dosage: 56.25 MG/M^2 Q3W
     Route: 042
     Dates: start: 20090218
  5. ETOPOSIDE [Suspect]
     Indication: SMALL CELL LUNG CANCER EXTENSIVE STAGE
     Dosage: 100 MG/M^2 D1, D2, D3 Q3W
     Route: 042
     Dates: start: 20081126, end: 20090217
  6. ETOPOSIDE [Suspect]
     Dosage: 75 MG/M^2 D1, D2, D3 Q3W
     Route: 042
     Dates: start: 20090218

REACTIONS (1)
  - PULMONARY EMBOLISM [None]
